FAERS Safety Report 26013896 (Version 1)
Quarter: 2025Q4

REPORT INFORMATION
  Report Type: Spontaneous
  Country: EU (occurrence: EU)
  Receive Date: 20251108
  Receipt Date: 20251108
  Transmission Date: 20260118
  Serious: Yes (Hospitalization, Other)
  Sender: AUROBINDO
  Company Number: EU-AUROBINDO-AUR-APL-2019-022106

PATIENT
  Age: 73 Year
  Sex: Male
  Weight: 53 kg

DRUGS (2)
  1. DOCETAXEL [Suspect]
     Active Substance: DOCETAXEL
     Indication: Lung adenocarcinoma
     Dosage: 75 MILLIEQUIVALENT PER SQUARE METRE
     Route: 042
     Dates: start: 20160420
  2. NINTEDANIB [Suspect]
     Active Substance: NINTEDANIB
     Indication: Lung adenocarcinoma
     Dosage: 300 MILLIGRAM, ONCE A DAY
     Route: 048
     Dates: start: 20160421, end: 20161013

REACTIONS (3)
  - Anaemia [Recovered/Resolved]
  - Duodenal ulcer [Recovered/Resolved]
  - Gastrooesophageal reflux disease [Recovered/Resolved]

NARRATIVE: CASE EVENT DATE: 20160427
